FAERS Safety Report 14154044 (Version 3)
Quarter: 2018Q1

REPORT INFORMATION
  Report Type: Report from Study
  Country: KR (occurrence: KR)
  Receive Date: 20171102
  Receipt Date: 20180302
  Transmission Date: 20180508
  Serious: Yes (Death, Hospitalization)
  Sender: FDA-Public Use
  Company Number: KR-DSJP-DSJ-2017-151527

PATIENT

DRUGS (29)
  1. EDOXABAN [Suspect]
     Active Substance: EDOXABAN TOSYLATE
     Indication: ATRIAL FIBRILLATION
     Dosage: 30 MG; DAILY
     Route: 048
     Dates: start: 20170712, end: 20170906
  2. GLIATAMIN [Concomitant]
     Indication: DEMENTIA ALZHEIMER^S TYPE
     Dosage: 1 DF, BID
     Route: 048
     Dates: start: 20170712, end: 20170905
  3. HERBEN [Concomitant]
     Active Substance: DILTIAZEM HYDROCHLORIDE
     Indication: ESSENTIAL HYPERTENSION
     Dosage: 90 MG, QD
     Route: 048
     Dates: start: 20170809, end: 20171019
  4. CHOLINAL [Concomitant]
     Indication: DEMENTIA ALZHEIMER^S TYPE
     Dosage: 1 DF, BID
     Route: 048
     Dates: start: 20170908
  5. CENTRUM SILVER FORTE [Concomitant]
     Active Substance: VITAMINS
     Indication: ANAEMIA
     Dosage: 1 DF, QD
     Route: 048
     Dates: start: 20170918
  6. ALAXYL [Concomitant]
     Active Substance: PLANTAGO SEED\SENNA LEAF
     Indication: CONSTIPATION
     Dosage: 1 DF, BID
     Route: 048
     Dates: start: 20171020
  7. EDOXABAN [Suspect]
     Active Substance: EDOXABAN TOSYLATE
     Dosage: 30 MG; DAILY
     Route: 048
     Dates: start: 20170910
  8. COLCLEAN-S [Concomitant]
     Indication: COLON ADENOMA
     Dosage: 133 ML, QD
     Route: 048
     Dates: start: 20170907, end: 20170907
  9. FEROBA YOU [Concomitant]
     Indication: ANAEMIA
     Dosage: 1 DF, BID
     Route: 048
     Dates: start: 20170911, end: 20170918
  10. DEPAKINE CHRONO [Concomitant]
     Active Substance: VALPROATE SODIUM
     Indication: BIPOLAR I DISORDER
     Dosage: 500 MG, BID
     Route: 048
     Dates: start: 20170712
  11. ATORVIN [Concomitant]
     Indication: PALPITATIONS
     Dosage: 10 MG, QD
     Route: 048
     Dates: start: 20170712, end: 20170906
  12. LIPITOR [Concomitant]
     Active Substance: ATORVASTATIN CALCIUM
     Indication: ARTERIOSCLEROSIS
     Dosage: 10 MG, QD
     Route: 048
     Dates: start: 20170907, end: 20171019
  13. CONCOR [Concomitant]
     Active Substance: BISOPROLOL FUMARATE
     Indication: ESSENTIAL HYPERTENSION
     Dosage: 2.5 MG, QD
     Route: 048
     Dates: start: 20170712, end: 20170808
  14. QUETAPIN [Concomitant]
     Indication: BIPOLAR I DISORDER
     Dosage: 12.5 MG, QD
     Route: 048
     Dates: start: 20170712
  15. NITROLINGUAL [Concomitant]
     Active Substance: NITROGLYCERIN
     Indication: PALPITATIONS
     Dosage: 12.2 ML, QD
     Route: 060
     Dates: start: 20170809, end: 20170905
  16. RYTMONORM [Concomitant]
     Active Substance: PROPAFENONE
     Dosage: 75 MG, BID
     Route: 048
     Dates: start: 20170907
  17. SULFOLASE [Concomitant]
     Indication: CHRONIC OBSTRUCTIVE PULMONARY DISEASE
     Dosage: 1 DF, BID
     Route: 048
     Dates: start: 20170816, end: 20170906
  18. DAXAS [Concomitant]
     Active Substance: ROFLUMILAST
     Indication: CHRONIC OBSTRUCTIVE PULMONARY DISEASE
     Dosage: 500 ?G, QD
     Route: 048
     Dates: start: 20170816, end: 20170906
  19. SCD MAGNESIUM OXIDE [Concomitant]
     Indication: CONSTIPATION
     Dosage: 250 MG, TID
     Route: 048
     Dates: start: 20171020
  20. HYABAK [Concomitant]
     Active Substance: HYALURONATE SODIUM
     Indication: CONJUNCTIVITIS
     Dosage: 1 DF, AS NEEDED
     Route: 047
     Dates: start: 20170801, end: 20170808
  21. CRAVIT [Concomitant]
     Active Substance: LEVOFLOXACIN
     Indication: CONJUNCTIVITIS
     Dosage: 1 DF, AS NEEDED
     Route: 047
     Dates: start: 20170801, end: 20170808
  22. MAGNESIUM OXIDE. [Concomitant]
     Active Substance: MAGNESIUM OXIDE
     Indication: COLON ADENOMA
     Dosage: 500 MG, TID
     Route: 048
     Dates: start: 20170908, end: 20170917
  23. DIGOSIN [Concomitant]
     Active Substance: DIGOXIN
     Indication: PALPITATIONS
     Dosage: 1 DF, QD
     Route: 048
     Dates: start: 20170809, end: 20170906
  24. RYTMONORM [Concomitant]
     Active Substance: PROPAFENONE
     Indication: PALPITATIONS
     Dosage: 150 MG, BID
     Route: 048
     Dates: start: 20170809
  25. CENTRUM SILVER FORTE [Concomitant]
     Active Substance: VITAMINS
     Indication: COLON ADENOMA
     Dosage: 1 DF, QD
     Route: 048
     Dates: start: 20170911, end: 20170911
  26. DONACEPT [Concomitant]
     Indication: DEMENTIA ALZHEIMER^S TYPE
     Dosage: 0.5 DF, BID
     Route: 048
     Dates: start: 20170712
  27. FOSTER [Concomitant]
     Active Substance: BECLOMETHASONE\FORMOTEROL
     Indication: CHRONIC OBSTRUCTIVE PULMONARY DISEASE
     Dosage: 1 DF, BID
     Route: 055
     Dates: start: 20170816
  28. SPIRIVA [Concomitant]
     Active Substance: TIOTROPIUM BROMIDE MONOHYDRATE
     Indication: CHRONIC OBSTRUCTIVE PULMONARY DISEASE
     Dosage: 1 DF, QD
     Route: 055
     Dates: start: 20170816
  29. FEBURIC [Concomitant]
     Active Substance: FEBUXOSTAT
     Indication: CHRONIC KIDNEY DISEASE
     Dosage: 20 MG, QD
     Route: 048
     Dates: start: 20170911

REACTIONS (3)
  - Pneumonia [Fatal]
  - Melaena [Recovering/Resolving]
  - Colon adenoma [Recovered/Resolved]

NARRATIVE: CASE EVENT DATE: 20170905
